FAERS Safety Report 5020307-7 (Version None)
Quarter: 2006Q2

REPORT INFORMATION
  Report Type: 
  Country: None (occurrence: None)
  Receive Date: 20060602
  Receipt Date: 20060519
  Transmission Date: 20061013
  Serious: Yes (Death, Hospitalization, Other)
  Sender: FDA-Public Use
  Company Number: PHBS2006JP03651

PATIENT
  Age: 68 Year
  Sex: Female

DRUGS (3)
  1. DIGOXIN [Suspect]
     Indication: ATRIAL FIBRILLATION
     Dosage: 0.25 MG/DAY, UNK
  2. PAROXETINE HCL [Suspect]
     Indication: MAJOR DEPRESSION
     Dosage: 20 MG/DAY, UNKNOWN
  3. WARFARIN (WARFARIN) [Concomitant]

REACTIONS (28)
  - ABASIA [None]
  - ANOREXIA [None]
  - ATRIOVENTRICULAR BLOCK COMPLETE [None]
  - BEDRIDDEN [None]
  - BLOOD CREATININE INCREASED [None]
  - BRADYCARDIA [None]
  - CARDIOACTIVE DRUG LEVEL INCREASED [None]
  - DELIRIUM [None]
  - DEPRESSED MOOD [None]
  - DIFFICULTY IN WALKING [None]
  - DISORIENTATION [None]
  - DISTURBANCE IN ATTENTION [None]
  - DIZZINESS [None]
  - DRUG INTERACTION [None]
  - DYSPHAGIA [None]
  - HALLUCINATION, VISUAL [None]
  - INTERNATIONAL NORMALISED RATIO INCREASED [None]
  - MAJOR DEPRESSION [None]
  - NAUSEA [None]
  - PNEUMONIA ASPIRATION [None]
  - REBOUND EFFECT [None]
  - SLEEP DISORDER [None]
  - TEARFULNESS [None]
  - TENSION [None]
  - THERAPEUTIC AGENT TOXICITY [None]
  - THINKING ABNORMAL [None]
  - VENTRICULAR EXTRASYSTOLES [None]
  - VOMITING [None]
